FAERS Safety Report 16810674 (Version 1)
Quarter: 2019Q3

REPORT INFORMATION
  Report Type: Report from Study
  Country: DE (occurrence: DE)
  Receive Date: 20190916
  Receipt Date: 20190916
  Transmission Date: 20191005
  Serious: Yes (Hospitalization)
  Sender: FDA-Public Use
  Company Number: DE-PFIZER INC-2019392919

PATIENT
  Age: 66 Year
  Sex: Male

DRUGS (7)
  1. RITUXIMAB. [Suspect]
     Active Substance: RITUXIMAB
     Dosage: 500 MG, UNK
     Route: 041
     Dates: start: 201606
  2. NO SUBJECT DRUG [Suspect]
     Active Substance: UNSPECIFIED INGREDIENT
     Dosage: NO DOSE GIVEN
  3. METHOTREXATE SODIUM. [Suspect]
     Active Substance: METHOTREXATE SODIUM
     Indication: RHEUMATOID ARTHRITIS
     Dosage: 15 MG, UNK
     Route: 065
  4. RITUXIMAB. [Suspect]
     Active Substance: RITUXIMAB
     Indication: RHEUMATOID ARTHRITIS
     Dosage: 1000 MG, UNK
     Route: 041
     Dates: start: 20140707
  5. RITUXIMAB. [Suspect]
     Active Substance: RITUXIMAB
     Dosage: 1000 MG, UNK
     Route: 041
     Dates: start: 201501
  6. RITUXIMAB. [Suspect]
     Active Substance: RITUXIMAB
     Dosage: 500 MG, UNK
     Route: 041
     Dates: start: 201701
  7. RITUXIMAB. [Suspect]
     Active Substance: RITUXIMAB
     Dosage: 1000 MG, UNK
     Route: 041
     Dates: start: 201511

REACTIONS (1)
  - Papillary cystadenoma lymphomatosum [Unknown]

NARRATIVE: CASE EVENT DATE: 20181024
